FAERS Safety Report 14613644 (Version 1)
Quarter: 2018Q1

REPORT INFORMATION
  Report Type: Spontaneous
  Country: US (occurrence: US)
  Receive Date: 20180308
  Receipt Date: 20180308
  Transmission Date: 20180509
  Serious: Yes (Other)
  Sender: FDA-Public Use
  Company Number: US-GILEAD-2017-0292512

PATIENT
  Age: 64 Year
  Sex: Male
  Weight: 92.63 kg

DRUGS (1)
  1. HARVONI [Suspect]
     Active Substance: LEDIPASVIR\SOFOSBUVIR
     Indication: CHRONIC HEPATITIS C
     Dosage: 1 DF, UNK
     Route: 048
     Dates: start: 20170214, end: 20170514

REACTIONS (2)
  - Treatment failure [Unknown]
  - Hepatitis C [Unknown]

NARRATIVE: CASE EVENT DATE: 20170809
